FAERS Safety Report 6354841-4 (Version None)
Quarter: 2009Q3

REPORT INFORMATION
  Report Type: 
  Country: None (occurrence: None)
  Receive Date: 20090914
  Receipt Date: 20090904
  Transmission Date: 20100115
  Serious: Yes (Hospitalization, Other)
  Sender: FDA-Public Use
  Company Number: GR-ABBOTT-09P-066-0586549-00

PATIENT
  Age: 80 Year
  Sex: Male
  Weight: 67.5 kg

DRUGS (16)
  1. ZEMPLAR [Suspect]
     Indication: HYPERPARATHYROIDISM SECONDARY
     Route: 042
     Dates: end: 20090718
  2. ZEMPLAR [Suspect]
     Route: 042
     Dates: start: 20090807
  3. NITRONG [Concomitant]
     Indication: ANGINA PECTORIS
     Dates: start: 20090707
  4. LOPRESSOR [Concomitant]
     Indication: ANGINA PECTORIS
     Dosage: 50 MG 1/4 TAB BID
     Route: 048
     Dates: start: 20090718
  5. MIMPARA [Concomitant]
     Indication: HYPERCALCAEMIA
     Dates: start: 20090721
  6. LOFTYL [Concomitant]
     Indication: DRUG USE FOR UNKNOWN INDICATION
     Route: 048
  7. ADALAT CC [Concomitant]
     Indication: DRUG USE FOR UNKNOWN INDICATION
     Route: 048
  8. BIOTIN [Concomitant]
     Indication: DRUG USE FOR UNKNOWN INDICATION
     Route: 042
  9. SUPERAMINE [Concomitant]
     Indication: DRUG USE FOR UNKNOWN INDICATION
     Route: 042
  10. RENAGEL [Concomitant]
     Indication: HYPERPHOSPHATAEMIA
     Route: 048
  11. FORSENOL [Concomitant]
     Indication: HYPERPHOSPHATAEMIA
     Route: 048
  12. OMACOR [Concomitant]
     Indication: DYSLIPIDAEMIA
     Route: 048
  13. LEPUR [Concomitant]
     Indication: DYSLIPIDAEMIA
     Route: 048
  14. PRILOSEC [Concomitant]
     Indication: DRUG USE FOR UNKNOWN INDICATION
     Route: 048
  15. REVOTONINE [Concomitant]
     Indication: DRUG USE FOR UNKNOWN INDICATION
     Route: 048
  16. NEUROBION [Concomitant]
     Indication: DRUG USE FOR UNKNOWN INDICATION
     Route: 042

REACTIONS (2)
  - HAEMATOCRIT INCREASED [None]
  - TRANSIENT ISCHAEMIC ATTACK [None]
